FAERS Safety Report 17116356 (Version 1)
Quarter: 2019Q4

REPORT INFORMATION
  Report Type: Spontaneous
  Country: ES (occurrence: ES)
  Receive Date: 20191205
  Receipt Date: 20191205
  Transmission Date: 20200122
  Serious: Yes (Other)
  Sender: FDA-Public Use
  Company Number: ES-GALDERMA-ES19064668

PATIENT
  Age: 38 Year
  Sex: Female
  Weight: 56 kg

DRUGS (1)
  1. ROZEX (METRONIDAZOLE) [Suspect]
     Active Substance: METRONIDAZOLE
     Indication: PERIORAL DERMATITIS
     Dosage: UNKNOWN, TUBE OF 30G
     Route: 061
     Dates: start: 20190813, end: 20190820

REACTIONS (4)
  - Visual impairment [Recovered/Resolved]
  - Product use in unapproved indication [Recovered/Resolved]
  - Conjunctivitis allergic [Recovered/Resolved]
  - Lacrimation increased [Recovered/Resolved]

NARRATIVE: CASE EVENT DATE: 20190813
